FAERS Safety Report 16056120 (Version 1)
Quarter: 2019Q2

REPORT INFORMATION
  Report Type: Spontaneous
  Country: US (occurrence: US)
  Receive Date: 20190308
  Receipt Date: 20190308
  Transmission Date: 20190711
  Serious: Yes (Hospitalization)
  Sender: FDA-Public Use
  Company Number: None

PATIENT
  Sex: Female

DRUGS (13)
  1. ALENDRONATE [Concomitant]
     Active Substance: ALENDRONATE SODIUM
  2. ISOSORBIDIN [Concomitant]
  3. XARELTO [Concomitant]
     Active Substance: RIVAROXABAN
  4. HYDRALAZINE [Concomitant]
     Active Substance: HYDRALAZINE HYDROCHLORIDE
  5. SPIRONOLACTONE. [Concomitant]
     Active Substance: SPIRONOLACTONE
  6. OMEPRAZOLE. [Concomitant]
     Active Substance: OMEPRAZOLE
  7. FAMOTIDINE. [Concomitant]
     Active Substance: FAMOTIDINE
  8. ZOLPIDEM [Concomitant]
     Active Substance: ZOLPIDEM\ZOLPIDEM TARTRATE
  9. ESBRIET [Suspect]
     Active Substance: PIRFENIDONE
     Indication: IDIOPATHIC PULMONARY FIBROSIS
     Route: 048
     Dates: start: 20181201
  10. DOFETILIDE. [Concomitant]
     Active Substance: DOFETILIDE
  11. METOPROLOL. [Concomitant]
     Active Substance: METOPROLOL
  12. ENTRESTO [Concomitant]
     Active Substance: SACUBITRIL\VALSARTAN
  13. POT CL MICRO [Concomitant]

REACTIONS (3)
  - Lung disorder [None]
  - Product availability issue [None]
  - Product dose omission [None]
